FAERS Safety Report 23504990 (Version 1)
Quarter: 2024Q1

REPORT INFORMATION
  Report Type: Spontaneous
  Country: GB (occurrence: GB)
  Receive Date: 20240209
  Receipt Date: 20240209
  Transmission Date: 20240410
  Serious: No
  Sender: FDA-Public Use
  Company Number: None

PATIENT
  Sex: Female
  Weight: 95 kg

DRUGS (3)
  1. GABAPENTIN [Suspect]
     Active Substance: GABAPENTIN
     Indication: Generalised anxiety disorder
     Dosage: 100 MILLIGRAM, TID (CAPSULE)
     Route: 065
     Dates: start: 20230723
  2. GABAPENTIN [Suspect]
     Active Substance: GABAPENTIN
     Indication: Depression
  3. VYVANSE [Concomitant]
     Active Substance: LISDEXAMFETAMINE DIMESYLATE
     Indication: Attention deficit hyperactivity disorder
     Dosage: UNK
     Route: 065
     Dates: start: 20220611

REACTIONS (1)
  - Lactation disorder [Unknown]

NARRATIVE: CASE EVENT DATE: 20230725
